FAERS Safety Report 5740937-4 (Version None)
Quarter: 2008Q2

REPORT INFORMATION
  Report Type: 
  Country: None (occurrence: None)
  Receive Date: 20080515
  Receipt Date: 20080325
  Transmission Date: 20081010
  Serious: No
  Sender: FDA-Public Use
  Company Number: WAES 0803USA04153

PATIENT
  Age: 53 Year
  Sex: Male

DRUGS (3)
  1. ISENTRESS [Suspect]
     Indication: HIV INFECTION
     Dosage: 400 MG/BID/PO
     Route: 048
     Dates: start: 20071108
  2. TRUVADA [Concomitant]
  3. OMEPRAZOLE [Concomitant]

REACTIONS (1)
  - HEADACHE [None]
